FAERS Safety Report 15461496 (Version 1)
Quarter: 2018Q4

REPORT INFORMATION
  Report Type: Spontaneous
  Country: PR (occurrence: PR)
  Receive Date: 20181003
  Receipt Date: 20181003
  Transmission Date: 20190204
  Serious: Yes (Other)
  Sender: FDA-Public Use
  Company Number: PR-PRINSTON PHARMACEUTICAL INC.-2018PRN01422

PATIENT
  Sex: Female

DRUGS (1)
  1. VALSARTAN. [Suspect]
     Active Substance: VALSARTAN
     Indication: HYPERTENSION
     Dosage: 40 MG, 1X/DAY
     Route: 048
     Dates: start: 201009

REACTIONS (1)
  - Neoplasm malignant [Recovered/Resolved]

NARRATIVE: CASE EVENT DATE: 2015
